FAERS Safety Report 7760858-5 (Version None)
Quarter: 2011Q3

REPORT INFORMATION
  Report Type: 
  Country: None (occurrence: None)
  Receive Date: 20110919
  Receipt Date: 20110909
  Transmission Date: 20111222
  Serious: Yes (Life-Threatening, Hospitalization, Other)
  Sender: FDA-Public Use
  Company Number: JP-AMGEN-JPNCT2011021057

PATIENT
  Age: 78 Year
  Sex: Male
  Weight: 62 kg

DRUGS (16)
  1. COLONEL [Concomitant]
     Dosage: UNK
     Route: 048
  2. HIRUDOID FORTE [Concomitant]
     Dosage: UNK
     Route: 062
  3. MYSER [Concomitant]
     Dosage: UNK
     Route: 062
  4. CAMPTOSAR [Suspect]
     Indication: COLORECTAL CANCER
     Route: 041
     Dates: start: 20100910, end: 20101224
  5. ANTIHISTAMINES [Concomitant]
     Indication: PROPHYLAXIS
     Dosage: UNK
     Route: 065
  6. CORTICOSTEROIDS [Concomitant]
     Indication: PROPHYLAXIS
     Route: 065
  7. FLUOROURACIL [Concomitant]
     Route: 041
     Dates: start: 20100910, end: 20101224
  8. PHELLOBERIN A [Concomitant]
     Dosage: UNK
     Route: 048
  9. TAIPEMIN [Concomitant]
     Dosage: UNK
     Route: 048
  10. SCORPAN [Concomitant]
     Dosage: UNK
     Route: 042
  11. PANITUMUMAB [Suspect]
     Dosage: 6 MG/KG, Q2WK
     Route: 041
     Dates: start: 20101209, end: 20101224
  12. PANITUMUMAB [Suspect]
     Indication: COLORECTAL CANCER
     Dosage: 6 MG/KG, Q2WK
     Route: 041
     Dates: start: 20100910, end: 20101105
  13. FLUOROURACIL [Concomitant]
     Indication: COLORECTAL CANCER
     Route: 040
     Dates: start: 20100910, end: 20101224
  14. LEUCOVORIN CALCIUM [Concomitant]
     Indication: COLORECTAL CANCER
     Route: 041
     Dates: start: 20100910, end: 20101224
  15. DRENISON [Concomitant]
     Dosage: UNK
     Route: 062
  16. ADSORBIN [Concomitant]
     Dosage: UNK
     Route: 048

REACTIONS (3)
  - CEREBRAL INFARCTION [None]
  - PARONYCHIA [None]
  - DIARRHOEA [None]
